FAERS Safety Report 5789095-0 (Version None)
Quarter: 2008Q2

REPORT INFORMATION
  Report Type: 
  Country: None (occurrence: None)
  Receive Date: 20080626
  Receipt Date: 20080227
  Transmission Date: 20081010
  Serious: No
  Sender: FDA-Public Use
  Company Number: US-ASTRAZENECA-2007UW28409

PATIENT
  Sex: Female

DRUGS (3)
  1. PULMICORT FLEXHALER [Suspect]
     Indication: ASTHMA
     Dosage: TWO PUFFS DAILY
     Route: 055
     Dates: start: 20071201
  2. PREDNISONE [Concomitant]
  3. SODIUM CHLORIDE [Concomitant]

REACTIONS (5)
  - DYSGEUSIA [None]
  - MALAISE [None]
  - RETCHING [None]
  - THROAT IRRITATION [None]
  - WHEEZING [None]
